FAERS Safety Report 12773107 (Version 1)
Quarter: 2016Q3

REPORT INFORMATION
  Report Type: Spontaneous
  Country: US (occurrence: US)
  Receive Date: 20160922
  Receipt Date: 20160922
  Transmission Date: 20161109
  Serious: No
  Sender: FDA-Public Use
  Company Number: US-TEIKOKU PHARMA USA-TPU2016-00585

PATIENT
  Sex: Male
  Weight: 99.88 kg

DRUGS (1)
  1. LIDODERM [Suspect]
     Active Substance: LIDOCAINE
     Indication: SCIATICA
     Dates: start: 2014

REACTIONS (1)
  - Body height decreased [Not Recovered/Not Resolved]
